FAERS Safety Report 5224396-6 (Version None)
Quarter: 2007Q1

REPORT INFORMATION
  Report Type: 
  Country: None (occurrence: None)
  Receive Date: 20070130
  Receipt Date: 20070119
  Transmission Date: 20070707
  Serious: Yes (Death, Life-Threatening, Hospitalization)
  Sender: FDA-Public Use
  Company Number: FR-PFIZER INC-2006081320

PATIENT
  Sex: Female
  Weight: 51 kg

DRUGS (3)
  1. SUTENT [Suspect]
     Indication: GASTROINTESTINAL STROMAL TUMOUR
     Route: 048
     Dates: start: 20060518, end: 20060615
  2. CEFTRIAXONE SODIUM [Concomitant]
     Dosage: TEXT:UNKNOWN-FREQ:UNKNOWN
     Route: 042
  3. CIPROFLOXACIN [Concomitant]
     Dosage: TEXT:UNKNOWN-FREQ:UNKNOWN
     Route: 065

REACTIONS (7)
  - BLOOD CREATINE PHOSPHOKINASE INCREASED [None]
  - DISEASE PROGRESSION [None]
  - GASTROINTESTINAL STROMAL TUMOUR [None]
  - MYALGIA [None]
  - MYOSITIS [None]
  - PURPURA [None]
  - STOMATITIS [None]
